FAERS Safety Report 11328913 (Version 1)
Quarter: 2015Q3

REPORT INFORMATION
  Report Type: Spontaneous
  Country: US (occurrence: US)
  Receive Date: 20150801
  Receipt Date: 20150801
  Transmission Date: 20151125
  Serious: Yes (Life-Threatening, Other)
  Sender: FDA-Public Use
  Company Number: US-AUROBINDO-AUR-APL-2015-06783

PATIENT
  Age: 65 Year
  Sex: Female

DRUGS (3)
  1. VALACICLOVIR [Suspect]
     Active Substance: VALACYCLOVIR HYDROCHLORIDE
     Indication: HERPES ZOSTER CUTANEOUS DISSEMINATED
     Dosage: 1 G
     Route: 065
  2. ACYCLOVIR                          /00587301/ [Suspect]
     Active Substance: ACYCLOVIR
     Indication: HERPES ZOSTER CUTANEOUS DISSEMINATED
     Dosage: 1 G
     Route: 042
  3. PREDNISONE. [Suspect]
     Active Substance: PREDNISONE
     Indication: HERPES ZOSTER CUTANEOUS DISSEMINATED
     Route: 065

REACTIONS (6)
  - Myoclonus [Unknown]
  - Sinus tachycardia [Unknown]
  - Neurotoxicity [Unknown]
  - Ischaemia [Unknown]
  - Electrocardiogram ST segment depression [Unknown]
  - Electrocardiogram T wave inversion [Unknown]
